FAERS Safety Report 15386307 (Version 5)
Quarter: 2019Q1

REPORT INFORMATION
  Report Type: Spontaneous
  Country: BR (occurrence: BR)
  Receive Date: 20180914
  Receipt Date: 20190328
  Transmission Date: 20190417
  Serious: Yes (Hospitalization, Other)
  Sender: FDA-Public Use
  Company Number: BR-PFIZER INC-2012282687

PATIENT
  Age: 58 Year
  Sex: Male

DRUGS (6)
  1. SUTENT [Suspect]
     Active Substance: SUNITINIB MALATE
     Indication: METASTATIC RENAL CELL CARCINOMA
     Dosage: 50 MG, CYCLE 4X2
     Route: 048
     Dates: start: 20121030
  2. SUTENT [Suspect]
     Active Substance: SUNITINIB MALATE
     Dosage: 37.5 MG, DAILY CYCLIC (4X2)
     Route: 048
     Dates: start: 20130627
  3. SUTENT [Suspect]
     Active Substance: SUNITINIB MALATE
     Dosage: UNK, CYCLIC ( 3 WEEKS AND RESTS 1 WEEK)
  4. SUTENT [Suspect]
     Active Substance: SUNITINIB MALATE
     Dosage: 50 MG, CYCLE 4X2 / 50 MG PER DAY DURING 4 WEEKS AND 2 WEEKS OF RESTING
     Route: 048
  5. SUTENT [Suspect]
     Active Substance: SUNITINIB MALATE
     Dosage: UNK
  6. SYNTHROID [Concomitant]
     Active Substance: LEVOTHYROXINE SODIUM
     Dosage: UNK
     Dates: start: 201301

REACTIONS (21)
  - Hypertension [Unknown]
  - Hyperthyroidism [Not Recovered/Not Resolved]
  - Hiatus hernia [Unknown]
  - Dysgeusia [Recovering/Resolving]
  - Stomatitis [Not Recovered/Not Resolved]
  - Contusion [Unknown]
  - Dry skin [Unknown]
  - Impaired healing [Not Recovered/Not Resolved]
  - Haemorrhoids [Recovered/Resolved]
  - Dyspepsia [Recovered/Resolved]
  - Myalgia [Unknown]
  - Gastrooesophageal reflux disease [Not Recovered/Not Resolved]
  - Yellow skin [Recovered/Resolved]
  - Genital discomfort [Recovered/Resolved]
  - Diarrhoea [Unknown]
  - Gastric disorder [Not Recovered/Not Resolved]
  - Wound [Not Recovered/Not Resolved]
  - Constipation [Unknown]
  - Product dose omission [Unknown]
  - Product container issue [Unknown]
  - Hypersensitivity [Unknown]

NARRATIVE: CASE EVENT DATE: 20121106
